FAERS Safety Report 17428737 (Version 1)
Quarter: 2020Q1

REPORT INFORMATION
  Report Type: Other
  Country: CA (occurrence: CA)
  Receive Date: 20200217
  Receipt Date: 20200217
  Transmission Date: 20200409
  Serious: Yes (Hospitalization, Other)
  Sender: FDA-Public Use
  Company Number: CA-ASSERTIO THERAPEUTICS, INC.-CA-2020DEP000099

PATIENT
  Age: 42 Year
  Sex: Female
  Weight: 100 kg

DRUGS (30)
  1. ACTEMRA [Suspect]
     Active Substance: TOCILIZUMAB
     Dosage: UNK
     Route: 042
  2. ACTEMRA [Suspect]
     Active Substance: TOCILIZUMAB
     Dosage: 300 MG, UNK
     Route: 042
  3. CITALOPRAM [Concomitant]
     Active Substance: CITALOPRAM HYDROBROMIDE
     Indication: PRODUCT USED FOR UNKNOWN INDICATION
     Dosage: UNK
  4. ACTEMRA [Suspect]
     Active Substance: TOCILIZUMAB
     Dosage: 375 MG, UNK
     Route: 042
  5. OMEGA 3                            /01333901/ [Concomitant]
     Active Substance: FISH OIL\TOCOPHEROL
     Indication: PRODUCT USED FOR UNKNOWN INDICATION
     Dosage: UNK
  6. ACTEMRA [Suspect]
     Active Substance: TOCILIZUMAB
     Dosage: 444 MG, UNK
     Route: 042
  7. DOCOSAHEXAENOIC ACID [Concomitant]
     Active Substance: DOCONEXENT
     Indication: PRODUCT USED FOR UNKNOWN INDICATION
     Dosage: UNK
  8. PANTOLOC                           /01263201/ [Concomitant]
     Active Substance: PANTOPRAZOLE SODIUM
     Indication: ANTACID THERAPY
  9. ACTEMRA [Suspect]
     Active Substance: TOCILIZUMAB
     Dosage: 400 MG, UNK
     Route: 042
  10. AMOXICILLIN. [Suspect]
     Active Substance: AMOXICILLIN
     Indication: SINUSITIS
  11. ACTEMRA [Suspect]
     Active Substance: TOCILIZUMAB
     Dosage: 480 MG, UNK
     Route: 042
  12. AMOXICILLIN. [Suspect]
     Active Substance: AMOXICILLIN
     Indication: TYMPANIC MEMBRANE PERFORATION
     Dosage: UNK
     Route: 065
  13. PANTOLOC                           /01263201/ [Concomitant]
     Active Substance: PANTOPRAZOLE SODIUM
     Indication: PROPHYLAXIS
     Dosage: UNK
     Route: 048
  14. DICLOFENAC POTASSIUM. [Suspect]
     Active Substance: DICLOFENAC POTASSIUM
     Indication: PRODUCT USED FOR UNKNOWN INDICATION
     Dosage: UNK
     Route: 065
  15. ACTEMRA [Suspect]
     Active Substance: TOCILIZUMAB
     Indication: RHEUMATOID ARTHRITIS
     Dosage: 375 MG, UNK
     Route: 042
  16. ACTEMRA [Suspect]
     Active Substance: TOCILIZUMAB
     Dosage: 400 MG, UNK
     Route: 042
  17. ACTEMRA [Suspect]
     Active Substance: TOCILIZUMAB
     Dosage: 350 MG, UNK
     Route: 042
  18. DILTIAZEM. [Concomitant]
     Active Substance: DILTIAZEM
     Dosage: 300 MG, UNK
     Route: 048
  19. ACTEMRA [Suspect]
     Active Substance: TOCILIZUMAB
     Dosage: 162 MG, UNK
     Route: 058
  20. ACTEMRA [Suspect]
     Active Substance: TOCILIZUMAB
     Dosage: 350 MG, UNK
     Route: 042
  21. ATORVASTATIN [Concomitant]
     Active Substance: ATORVASTATIN
     Indication: PRODUCT USED FOR UNKNOWN INDICATION
     Dosage: UNK
     Route: 048
  22. DILTIAZEM. [Concomitant]
     Active Substance: DILTIAZEM
     Indication: HYPERTENSION
     Dosage: 240 MG, 1 EVERY 1 DAY
     Route: 048
  23. DILTIAZEM. [Concomitant]
     Active Substance: DILTIAZEM
     Dosage: 240 MG, UNK
     Route: 048
  24. ACTEMRA [Suspect]
     Active Substance: TOCILIZUMAB
     Dosage: 350 MG, UNK
     Route: 042
  25. ACTEMRA [Suspect]
     Active Substance: TOCILIZUMAB
     Dosage: 350 MG, UNK
     Route: 042
  26. ACTEMRA [Suspect]
     Active Substance: TOCILIZUMAB
     Dosage: 300 MG, UNK
     Route: 065
  27. ORENCIA [Suspect]
     Active Substance: ABATACEPT
     Indication: PRODUCT USED FOR UNKNOWN INDICATION
     Dosage: UNK
     Route: 065
  28. ARAVA [Concomitant]
     Active Substance: LEFLUNOMIDE
     Indication: PRODUCT USED FOR UNKNOWN INDICATION
     Dosage: UNK
     Route: 048
  29. AVAPRO [Concomitant]
     Active Substance: IRBESARTAN
     Indication: HYPERTENSION
     Dosage: UNK
  30. CLONAZEPAM. [Concomitant]
     Active Substance: CLONAZEPAM
     Indication: PRODUCT USED FOR UNKNOWN INDICATION
     Dosage: UNK

REACTIONS (60)
  - Arthralgia [Unknown]
  - Arthropod bite [Unknown]
  - Cellulitis [Unknown]
  - Cystitis [Unknown]
  - Ear infection [Unknown]
  - Spinal pain [Unknown]
  - Therapy non-responder [Unknown]
  - Tinnitus [Unknown]
  - Blood pressure increased [Unknown]
  - Conjunctivitis [Unknown]
  - Dehydration [Unknown]
  - Weight increased [Unknown]
  - Heart rate decreased [Unknown]
  - Hepatic steatosis [Unknown]
  - Infusion related reaction [Unknown]
  - Malaise [Unknown]
  - Skin infection [Unknown]
  - Blood urine present [Unknown]
  - Hydronephrosis [Unknown]
  - Musculoskeletal chest pain [Unknown]
  - Myalgia [Unknown]
  - Oxygen saturation decreased [Unknown]
  - Pneumonia [Unknown]
  - Poor venous access [Unknown]
  - Road traffic accident [Unknown]
  - Skin swelling [Unknown]
  - Bronchial hyperreactivity [Unknown]
  - Fibrous histiocytoma [Unknown]
  - Nasal congestion [Unknown]
  - Paranasal sinus discomfort [Unknown]
  - Psoriasis [Unknown]
  - Sebaceous gland infection [Unknown]
  - Thermal burn [Unknown]
  - Tympanic membrane perforation [Unknown]
  - Blood pressure inadequately controlled [Unknown]
  - Blood pressure systolic increased [Unknown]
  - Incision site haemorrhage [Unknown]
  - Ligament sprain [Unknown]
  - Respiratory rate increased [Unknown]
  - Rhinorrhoea [Unknown]
  - Sinusitis [Unknown]
  - Ureteric obstruction [Unknown]
  - Arthrodesis [Unknown]
  - Bone swelling [Unknown]
  - Decubitus ulcer [Unknown]
  - Hepatic enzyme increased [Unknown]
  - Hypertension [Unknown]
  - Investigation abnormal [Unknown]
  - Nasopharyngitis [Unknown]
  - Parotid gland enlargement [Unknown]
  - Somnolence [Unknown]
  - Weight decreased [Unknown]
  - Contraindicated product administered [Unknown]
  - Dizziness [Unknown]
  - Dysphonia [Unknown]
  - Headache [Unknown]
  - Infected bite [Unknown]
  - Pyrexia [Unknown]
  - Urticaria [Unknown]
  - Weight abnormal [Unknown]
